FAERS Safety Report 10638207 (Version 1)
Quarter: 2014Q4

REPORT INFORMATION
  Report Type: Spontaneous
  Country: US (occurrence: None)
  Receive Date: 20141121
  Receipt Date: 20141121
  Transmission Date: 20150529
  Serious: No
  Sender: FDA-Public Use
  Company Number: 163-10004-14064281

PATIENT
  Age: 64 Year
  Sex: Female

DRUGS (7)
  1. OTEZLA [Suspect]
     Active Substance: APREMILAST
     Indication: PSORIATIC ARTHROPATHY
     Dosage: 60 MG, 2 IN 1 D, PO
     Route: 048
     Dates: start: 20140620
  2. VITAMIN D (ERGOCALCIFEROL) (UNKNOWN) [Concomitant]
  3. TOPROL (METOPROLOL SUCCINATE) (UNKNOWN) [Concomitant]
  4. FOLIC ACID (FOLIC ACID) (UNKNOWN) [Concomitant]
  5. DIOVAN (UNKNOWN) [Concomitant]
  6. TRAMADOL (TRAMADOL) (EXTENDED RELEASE) [Concomitant]
  7. HCTZ (HYDROCHLOROTHIAZIDE) (UNKNOWN) [Concomitant]

REACTIONS (6)
  - Paranasal sinus discomfort [None]
  - Dry mouth [None]
  - Pruritus [None]
  - Diarrhoea [None]
  - Laceration [None]
  - Headache [None]

NARRATIVE: CASE EVENT DATE: 201406
